FAERS Safety Report 4300500-9 (Version None)
Quarter: 2004Q1

REPORT INFORMATION
  Report Type: 
  Country: None (occurrence: None)
  Receive Date: 20040218
  Receipt Date: 20040127
  Transmission Date: 20041129
  Serious: Yes (Other)
  Sender: FDA-Public Use
  Company Number: USA030639074

PATIENT
  Age: 77 Year
  Sex: Female
  Weight: 54 kg

DRUGS (12)
  1. EVISTA [Suspect]
     Indication: OSTEOPOROSIS
     Dosage: 60 MG/DAY
     Dates: start: 20000101
  2. FORTEO [Suspect]
     Indication: OSTEOPOROSIS
     Dosage: 20 UG/DAY
     Dates: start: 20030501
  3. DARVOCET-N 100 [Concomitant]
  4. CELEBREX [Concomitant]
  5. UNIPHYL [Concomitant]
  6. SINGULAIR [Concomitant]
  7. PREVACID [Concomitant]
  8. COUMADIN [Concomitant]
  9. PROVENTIL [Concomitant]
  10. SEREVENT [Concomitant]
  11. PULMICORT [Concomitant]
  12. AMBIEN [Concomitant]

REACTIONS (7)
  - ATRIAL FIBRILLATION [None]
  - EYE HAEMORRHAGE [None]
  - INJECTION SITE HAEMORRHAGE [None]
  - INJECTION SITE STINGING [None]
  - MYOCARDIAL INFARCTION [None]
  - VISION BLURRED [None]
  - VISUAL DISTURBANCE [None]
